FAERS Safety Report 19687181 (Version 3)
Quarter: 2021Q3

REPORT INFORMATION
  Report Type: Spontaneous
  Country: US (occurrence: US)
  Receive Date: 20210811
  Receipt Date: 20210928
  Transmission Date: 20211014
  Serious: No
  Sender: FDA-Public Use
  Company Number: US-BEH-2021134835

PATIENT
  Sex: Female

DRUGS (4)
  1. HIZENTRA [Suspect]
     Active Substance: HUMAN IMMUNOGLOBULIN G
     Indication: MYASTHENIA GRAVIS
     Dosage: 36 GRAM, QW
     Route: 058
  2. HIZENTRA [Suspect]
     Active Substance: HUMAN IMMUNOGLOBULIN G
     Dosage: 36 UNK
     Route: 058
     Dates: start: 2021
  3. PREDNISONE. [Concomitant]
     Active Substance: PREDNISONE
     Route: 065
  4. CELLCEPT [Concomitant]
     Active Substance: MYCOPHENOLATE MOFETIL\MYCOPHENOLATE MOFETIL HYDROCHLORIDE
     Dosage: 500 MILLIGRAM

REACTIONS (11)
  - Drug ineffective for unapproved indication [Unknown]
  - Muscular weakness [Unknown]
  - Vision blurred [Unknown]
  - Gait disturbance [Unknown]
  - Balance disorder [Unknown]
  - Loss of personal independence in daily activities [Unknown]
  - No adverse event [Unknown]
  - Off label use [Unknown]
  - Pain in extremity [Unknown]
  - Fatigue [Unknown]
  - Hypoaesthesia [Unknown]
